FAERS Safety Report 10084687 (Version 3)
Quarter: 2014Q3

REPORT INFORMATION
  Report Type: Spontaneous
  Country: US (occurrence: US)
  Receive Date: 20140417
  Receipt Date: 20140827
  Transmission Date: 20150326
  Serious: Yes (Hospitalization)
  Sender: FDA-Public Use
  Company Number: US-GLAXOSMITHKLINE-A1069064A

PATIENT
  Age: 64 Year
  Sex: Female

DRUGS (5)
  1. ANTI-CHOLESTEROL MEDICATION [Concomitant]
     Active Substance: UNSPECIFIED INGREDIENT
  2. VENTOLIN [Suspect]
     Active Substance: ALBUTEROL SULFATE
     Indication: PRODUCT USED FOR UNKNOWN INDICATION
     Route: 065
  3. ACID REFLUX MED. [Concomitant]
  4. INHALERS [Concomitant]
     Active Substance: UNSPECIFIED INGREDIENT
  5. ADVAIR HFA [Suspect]
     Active Substance: FLUTICASONE PROPIONATE\SALMETEROL XINAFOATE
     Indication: CHRONIC OBSTRUCTIVE PULMONARY DISEASE
     Dosage: 1PUFF TWICE PER DAY
     Route: 055
     Dates: start: 2009

REACTIONS (3)
  - Haemorrhoidal haemorrhage [Recovering/Resolving]
  - Gastric haemorrhage [Recovering/Resolving]
  - Blood iron decreased [Recovering/Resolving]

NARRATIVE: CASE EVENT DATE: 20140330
